FAERS Safety Report 16149404 (Version 1)
Quarter: 2019Q2

REPORT INFORMATION
  Report Type: Spontaneous
  Country: US (occurrence: US)
  Receive Date: 20190402
  Receipt Date: 20190402
  Transmission Date: 20190711
  Serious: No
  Sender: FDA-Public Use
  Company Number: US-TEVA-2019-US-1025889

PATIENT
  Sex: Female

DRUGS (1)
  1. ACTAVIS GABAPENTIN TABLETS [Suspect]
     Active Substance: GABAPENTIN
     Indication: NEURALGIA

REACTIONS (7)
  - Aggression [Unknown]
  - Insomnia [Unknown]
  - Tremor [Unknown]
  - Depression [Unknown]
  - Restlessness [Unknown]
  - Product substitution issue [Unknown]
  - Constipation [Unknown]
